FAERS Safety Report 23078181 (Version 1)
Quarter: 2023Q4

REPORT INFORMATION
  Report Type: Spontaneous
  Country: US (occurrence: US)
  Receive Date: 20231018
  Receipt Date: 20231018
  Transmission Date: 20240110
  Serious: Yes (Other)
  Sender: FDA-Public Use
  Company Number: US-SANOFI-01629228

PATIENT
  Sex: Male

DRUGS (1)
  1. DULCOLAX (BISACODYL) [Suspect]
     Active Substance: BISACODYL
     Dosage: DOSE DESCRIPTION : UNK
     Route: 065

REACTIONS (5)
  - Autonomic neuropathy [Unknown]
  - Brain fog [Unknown]
  - Listless [Unknown]
  - Urticaria [Unknown]
  - Rash [Unknown]
